FAERS Safety Report 5013125-7 (Version None)
Quarter: 2006Q2

REPORT INFORMATION
  Report Type: 
  Country: None (occurrence: None)
  Receive Date: 20060530
  Receipt Date: 20060302
  Transmission Date: 20061013
  Serious: No
  Sender: FDA-Public Use
  Company Number: US-GLAXOSMITHKLINE-A0595913A

PATIENT
  Age: 68 Year
  Sex: Male

DRUGS (3)
  1. WELLBUTRIN XL [Suspect]
     Indication: DEPRESSION
     Dosage: 150MG PER DAY
     Route: 048
     Dates: start: 20050801
  2. CRESTOR [Concomitant]
  3. ASPIRIN [Concomitant]

REACTIONS (2)
  - MUSCLE TIGHTNESS [None]
  - PSYCHOMOTOR HYPERACTIVITY [None]
